FAERS Safety Report 6679067-6 (Version None)
Quarter: 2010Q2

REPORT INFORMATION
  Report Type: 
  Country: None (occurrence: None)
  Receive Date: 20100413
  Receipt Date: 20100331
  Transmission Date: 20101027
  Serious: No
  Sender: FDA-Public Use
  Company Number: US-B.I. PHARMACEUTICALS,INC./RIDGEFIELD-2010-BP-03171BP

PATIENT
  Sex: Male

DRUGS (7)
  1. SPIRIVA [Suspect]
     Indication: CHRONIC OBSTRUCTIVE PULMONARY DISEASE
     Dosage: 18 MCG
     Route: 055
     Dates: start: 20090101
  2. OMEPRAZOLE [Concomitant]
  3. FUROSEMIDE [Concomitant]
  4. AVANDIA [Concomitant]
  5. LISINOPRIL AND HYDROCHLOROTHIAZIDE [Concomitant]
  6. GLYBURIDE AND METFORMIN HYDROCHLORIDE [Concomitant]
  7. LOVASTATIN [Concomitant]

REACTIONS (1)
  - GLOSSODYNIA [None]
